FAERS Safety Report 5152975-3 (Version None)
Quarter: 2006Q4

REPORT INFORMATION
  Report Type: 
  Country: None (occurrence: None)
  Receive Date: 20061114
  Receipt Date: 20061114
  Transmission Date: 20070319
  Serious: Yes (Death)
  Sender: FDA-Public Use
  Company Number: None

PATIENT
  Sex: Female
  Weight: 52.6 kg

DRUGS (2)
  1. ENOXAPARIN SODIUM [Suspect]
     Indication: ATRIAL FIBRILLATION
     Dosage: 50 MG Q12H SQ
     Route: 058
     Dates: start: 20060907, end: 20060912
  2. WARFARIN SODIUM [Suspect]
     Indication: ATRIAL FIBRILLATION
     Dosage: 4 MG DAILY PO
     Route: 048
     Dates: start: 20060908, end: 20060912

REACTIONS (2)
  - ATRIAL FIBRILLATION [None]
  - MUSCLE HAEMORRHAGE [None]
